FAERS Safety Report 9435515 (Version 1)
Quarter: 2013Q3

REPORT INFORMATION
  Report Type: Spontaneous
  Country: GB (occurrence: GB)
  Receive Date: 20130801
  Receipt Date: 20130801
  Transmission Date: 20140515
  Serious: Yes (Hospitalization, Other)
  Sender: FDA-Public Use
  Company Number: GB-BAUSCH-BL-2013-004378

PATIENT
  Age: 16 Year
  Sex: Female
  Weight: 55 kg

DRUGS (7)
  1. PREDNISOLONE [Suspect]
     Indication: JUVENILE IDIOPATHIC ARTHRITIS
     Route: 048
     Dates: start: 201101
  2. METHOTREXATE [Suspect]
     Indication: JUVENILE IDIOPATHIC ARTHRITIS
     Route: 048
     Dates: start: 20110310, end: 20111203
  3. ROACTEMRA [Suspect]
     Indication: JUVENILE IDIOPATHIC ARTHRITIS
     Dates: start: 20111108
  4. ROACTEMRA [Suspect]
     Dates: start: 20111122, end: 20111203
  5. COLECALCIFEROL/CALCIUM CARBONATE [Concomitant]
     Dosage: 2 / 1 DAYS
     Route: 048
     Dates: start: 201101
  6. FOLIC ACID [Concomitant]
     Route: 048
     Dates: start: 20110310, end: 20111203
  7. LANSOPRAZOLE [Concomitant]

REACTIONS (6)
  - Acute respiratory distress syndrome [Recovered/Resolved]
  - Malaise [Unknown]
  - Pyrexia [Recovered/Resolved]
  - Infection [Unknown]
  - Pneumonitis [Not Recovered/Not Resolved]
  - Chills [Unknown]
